FAERS Safety Report 9652944 (Version 2)
Quarter: 2013Q4

REPORT INFORMATION
  Report Type: Other
  Country: JP (occurrence: JP)
  Receive Date: 20131029
  Receipt Date: 20131029
  Transmission Date: 20140711
  Serious: Yes (Hospitalization)
  Sender: FDA-Public Use
  Company Number: JP-BRISTOL-MYERS SQUIBB COMPANY-19421858

PATIENT
  Age: 37 Year
  Sex: Female

DRUGS (5)
  1. ERBITUX SOLN FOR INF 5MG/ML [Suspect]
     Indication: RECTAL CANCER
     Route: 041
     Dates: start: 20130115
  2. TS-1 [Suspect]
     Indication: RECTAL CANCER
     Route: 048
     Dates: start: 20130115, end: 20130123
  3. OXALIPLATIN [Concomitant]
     Indication: RECTAL CANCER
     Route: 041
  4. DECADRON [Concomitant]
     Dosage: TABS
     Route: 048
     Dates: start: 20130116, end: 20130117
  5. EMEND [Concomitant]
     Dosage: CAPS
     Route: 048
     Dates: start: 20130115, end: 20130117

REACTIONS (1)
  - Hepatic function abnormal [Recovering/Resolving]
